FAERS Safety Report 6670704-9 (Version None)
Quarter: 2010Q2

REPORT INFORMATION
  Report Type: 
  Country: None (occurrence: None)
  Receive Date: 20100407
  Receipt Date: 20100329
  Transmission Date: 20101027
  Serious: Yes (Death, Other)
  Sender: FDA-Public Use
  Company Number: US-NAPPMUNDI-USA-2010-0043019

PATIENT
  Age: 38 Year
  Sex: Male

DRUGS (4)
  1. MORPHINE SULFATE [Suspect]
     Indication: DRUG ABUSE
  2. OXYCODONE HYDROCHLORIDE [Suspect]
     Indication: DRUG ABUSE
  3. MARIJUANA [Suspect]
     Indication: DRUG ABUSE
  4. ALCOHOL [Suspect]
     Indication: DRUG ABUSE

REACTIONS (6)
  - AGGRESSION [None]
  - COMPLETED SUICIDE [None]
  - EUPHORIC MOOD [None]
  - GUN SHOT WOUND [None]
  - HOMICIDE [None]
  - SUBSTANCE ABUSE [None]
